FAERS Safety Report 25424139 (Version 1)
Quarter: 2025Q2

REPORT INFORMATION
  Report Type: Spontaneous
  Country: US (occurrence: US)
  Receive Date: 20250611
  Receipt Date: 20250611
  Transmission Date: 20250717
  Serious: No
  Sender: BAUSCH AND LOMB
  Company Number: US-BAUSCHBL-2025BNL010332

PATIENT
  Sex: Female

DRUGS (1)
  1. XIIDRA [Suspect]
     Active Substance: LIFITEGRAST
     Indication: Dry eye
     Dosage: 1 DROP IN EACH EYE TWICE A DAY FOR DRY EYE DISEASE AROUND 4 TO 5 WEEKS AGO
     Route: 047
     Dates: start: 202505

REACTIONS (4)
  - Dizziness [Unknown]
  - Vision blurred [Unknown]
  - Drug hypersensitivity [Unknown]
  - Eye irritation [Recovered/Resolved]

NARRATIVE: CASE EVENT DATE: 20250601
